FAERS Safety Report 5290277-5 (Version None)
Quarter: 2007Q2

REPORT INFORMATION
  Report Type: 
  Country: None (occurrence: None)
  Receive Date: 20070406
  Receipt Date: 20070327
  Transmission Date: 20071010
  Serious: Yes (Death, Life-Threatening, Disabling)
  Sender: FDA-Public Use
  Company Number: US-MERCK-0612USA02728

PATIENT
  Age: 60 Year
  Sex: Female

DRUGS (3)
  1. ZOLINZA [Suspect]
     Indication: MYCOSIS FUNGOIDES REFRACTORY
     Route: 048
     Dates: start: 20061101, end: 20060101
  2. ZOLINZA [Suspect]
     Route: 048
  3. ZOLINZA [Suspect]
     Route: 048
     Dates: start: 20060101, end: 20061201

REACTIONS (4)
  - DEHYDRATION [None]
  - DIARRHOEA [None]
  - MYOCARDIAL INFARCTION [None]
  - RENAL FAILURE [None]
